FAERS Safety Report 7389607-X (Version None)
Quarter: 2011Q1

REPORT INFORMATION
  Report Type: 
  Country: None (occurrence: None)
  Receive Date: 20110323
  Receipt Date: 20110311
  Transmission Date: 20110831
  Serious: Yes (Other)
  Sender: FDA-Public Use
  Company Number: 2011S1000089

PATIENT
  Age: 3 Day
  Sex: Male
  Weight: 1.27 kg

DRUGS (15)
  1. GENTAMICIN [Concomitant]
  2. HEPARIN [Concomitant]
  3. NITRIC OXIDE [Suspect]
     Indication: PROPHYLAXIS
     Dosage: 20 PPM;CONT;INH ; 10 PPM;CONT;INH ; 5 PPM;CONT;INH
     Route: 055
     Dates: start: 20110218, end: 20110305
  4. NITRIC OXIDE [Suspect]
     Indication: BRONCHOPULMONARY DYSPLASIA
     Dosage: 20 PPM;CONT;INH ; 10 PPM;CONT;INH ; 5 PPM;CONT;INH
     Route: 055
     Dates: start: 20110218, end: 20110305
  5. NITRIC OXIDE [Suspect]
     Indication: PROPHYLAXIS
     Dosage: 20 PPM;CONT;INH ; 10 PPM;CONT;INH ; 5 PPM;CONT;INH
     Route: 055
     Dates: start: 20110209, end: 20110212
  6. NITRIC OXIDE [Suspect]
     Indication: BRONCHOPULMONARY DYSPLASIA
     Dosage: 20 PPM;CONT;INH ; 10 PPM;CONT;INH ; 5 PPM;CONT;INH
     Route: 055
     Dates: start: 20110209, end: 20110212
  7. NITRIC OXIDE [Suspect]
     Indication: PROPHYLAXIS
     Dosage: 20 PPM;CONT;INH ; 10 PPM;CONT;INH ; 5 PPM;CONT;INH
     Route: 055
     Dates: start: 20110212, end: 20110218
  8. NITRIC OXIDE [Suspect]
     Indication: BRONCHOPULMONARY DYSPLASIA
     Dosage: 20 PPM;CONT;INH ; 10 PPM;CONT;INH ; 5 PPM;CONT;INH
     Route: 055
     Dates: start: 20110212, end: 20110218
  9. ACTIVASE [Concomitant]
  10. CALCIUM CARBONATE [Concomitant]
  11. OXACILLIN [Concomitant]
  12. MULTI-VITAMINS [Concomitant]
  13. FUROSEMIDE [Concomitant]
  14. CAFFEINE CITRATE [Concomitant]
  15. PIPERACILLIN [Concomitant]

REACTIONS (3)
  - PATENT DUCTUS ARTERIOSUS [None]
  - CONDITION AGGRAVATED [None]
  - NO THERAPEUTIC RESPONSE [None]
